FAERS Safety Report 8338161-4 (Version None)
Quarter: 2012Q2

REPORT INFORMATION
  Report Type: 
  Country: None (occurrence: None)
  Receive Date: 20120504
  Receipt Date: 20120430
  Transmission Date: 20120825
  Serious: No
  Sender: FDA-Public Use
  Company Number: US-PFIZER INC-2012056759

PATIENT
  Sex: Female
  Weight: 82.086 kg

DRUGS (2)
  1. DEPO-PROVERA [Suspect]
     Indication: OFF LABEL USE
     Dosage: 150 MG, EVERY 3 MONTHS
     Route: 030
     Dates: start: 20111201, end: 20120301
  2. DEPO-PROVERA [Suspect]
     Indication: MENSTRUAL DISORDER

REACTIONS (1)
  - RASH [None]
